FAERS Safety Report 15337553 (Version 3)
Quarter: 2018Q3

REPORT INFORMATION
  Report Type: Spontaneous
  Country: US (occurrence: US)
  Receive Date: 20180831
  Receipt Date: 20180906
  Transmission Date: 20181010
  Serious: No
  Sender: FDA-Public Use
  Company Number: US-PFIZER INC-2018347779

PATIENT
  Age: 62 Year
  Sex: Female
  Weight: 68.27 kg

DRUGS (1)
  1. LYRICA [Suspect]
     Active Substance: PREGABALIN
     Indication: FIBROMYALGIA
     Dosage: 150 MG, 3X/DAY
     Route: 048

REACTIONS (6)
  - Insomnia [Recovered/Resolved]
  - Product tampering [Unknown]
  - Product physical issue [Unknown]
  - Drug ineffective [Unknown]
  - Paraesthesia [Recovered/Resolved]
  - Restless legs syndrome [Unknown]

NARRATIVE: CASE EVENT DATE: 201808
